FAERS Safety Report 25556870 (Version 1)
Quarter: 2025Q3

REPORT INFORMATION
  Report Type: Spontaneous
  Country: US (occurrence: US)
  Receive Date: 20250715
  Receipt Date: 20250715
  Transmission Date: 20251020
  Serious: No
  Sender: ALEXION PHARMACEUTICALS
  Company Number: US-AstraZeneca-CH-00910636AM

PATIENT
  Sex: Male

DRUGS (1)
  1. AIRSUPRA [Suspect]
     Active Substance: ALBUTEROL SULFATE\BUDESONIDE
     Indication: Product used for unknown indication
     Route: 065

REACTIONS (3)
  - Tachycardia [Unknown]
  - Tremor [Unknown]
  - Intentional overdose [Unknown]
